FAERS Safety Report 21172410 (Version 10)
Quarter: 2025Q2

REPORT INFORMATION
  Report Type: Report from Study
  Country: US (occurrence: US)
  Receive Date: 20220804
  Receipt Date: 20250522
  Transmission Date: 20250717
  Serious: Yes (Other)
  Sender: NOVARTIS
  Company Number: NVSC2022US176380

PATIENT
  Sex: Female
  Weight: 62.2 kg

DRUGS (1)
  1. KESIMPTA [Suspect]
     Active Substance: OFATUMUMAB
     Indication: Multiple sclerosis
     Dosage: UNK, 28D
     Route: 058
     Dates: start: 202204

REACTIONS (5)
  - Pneumonia [Unknown]
  - Cough [Unknown]
  - Nasopharyngitis [Unknown]
  - Product distribution issue [Unknown]
  - Memory impairment [Unknown]
